FAERS Safety Report 9430098 (Version 3)
Quarter: 2013Q3

REPORT INFORMATION
  Report Type: Spontaneous
  Country: JP (occurrence: JP)
  Receive Date: 20130730
  Receipt Date: 20130815
  Transmission Date: 20140515
  Serious: Yes (Hospitalization)
  Sender: FDA-Public Use
  Company Number: JP-JNJFOC-20130714906

PATIENT
  Age: 57 Year
  Sex: Male

DRUGS (6)
  1. TRAMACET [Suspect]
     Indication: PAIN
     Dosage: 1 PER 1 DAY
     Route: 048
  2. OPALMON [Suspect]
     Indication: PRODUCT USED FOR UNKNOWN INDICATION
     Route: 048
  3. LYRICA [Concomitant]
     Indication: PAIN
     Dosage: 1 PER 1 DAY
     Route: 048
  4. CELECOX [Concomitant]
     Indication: INFLAMMATION
     Dosage: 1 PER 1 DAY
     Route: 048
  5. TAKEPRON [Concomitant]
     Indication: PROPHYLAXIS AGAINST GASTROINTESTINAL ULCER
     Dosage: 1 PER 1 DAY
     Route: 048
  6. MUCOSTA [Concomitant]
     Indication: PROPHYLAXIS AGAINST GASTROINTESTINAL ULCER
     Dosage: 1 PER 1 DAY
     Route: 048

REACTIONS (2)
  - Hernia [Unknown]
  - Epistaxis [Recovered/Resolved]
